FAERS Safety Report 4545478-8 (Version None)
Quarter: 2005Q1

REPORT INFORMATION
  Report Type: 
  Country: None (occurrence: None)
  Receive Date: 20050105
  Receipt Date: 20041111
  Transmission Date: 20050727
  Serious: Yes (Disabling)
  Sender: FDA-Public Use
  Company Number: US-MERCK-0411USA02242

PATIENT
  Age: 42 Year
  Sex: Female

DRUGS (25)
  1. FOSAMAX [Suspect]
     Indication: OSTEOPOROSIS
     Route: 048
     Dates: start: 20000301, end: 20010401
  2. PREDNISONE [Concomitant]
     Route: 065
  3. VITAMIN D (UNSPECIFIED) [Concomitant]
     Route: 065
  4. VITAMINS (UNSPECIFIED) [Concomitant]
     Route: 065
  5. CYANOCOBALAMIN [Concomitant]
     Route: 051
  6. FERROUS SULFATE [Concomitant]
     Route: 065
  7. ASCORBIC ACID [Concomitant]
     Route: 065
  8. CALCIUM (UNSPECIFIED) [Concomitant]
     Route: 065
  9. VITAMIN E [Concomitant]
     Route: 065
  10. ORTHO TRI-CYCLEN [Concomitant]
     Route: 065
     Dates: start: 20000401
  11. BUDESONIDE [Concomitant]
     Route: 065
  12. SALMETEROL [Concomitant]
     Route: 065
  13. ACETAMINOPHEN [Concomitant]
     Route: 065
  14. THEOPHYLLINE [Concomitant]
     Route: 065
  15. FEXOFENADINE HYDROCHLORIDE [Concomitant]
     Route: 065
  16. GABAPENTIN [Concomitant]
     Route: 065
  17. FUROSEMIDE [Concomitant]
     Route: 065
  18. COMBIVENT [Concomitant]
     Route: 065
  19. HYPERICIN [Concomitant]
     Route: 065
  20. DOXEPIN HYDROCHLORIDE [Concomitant]
     Route: 065
  21. CLONAZEPAM [Concomitant]
     Route: 065
  22. GINKGO BILOBA EXTRACT [Concomitant]
     Route: 065
  23. ALBUTEROL [Concomitant]
     Route: 065
  24. RABEPRAZOLE SODIUM [Concomitant]
     Route: 065
  25. GLUCOSAMINE SULFATE [Concomitant]
     Route: 065

REACTIONS (1)
  - OSTEOMALACIA [None]
